FAERS Safety Report 5191087-X (Version None)
Quarter: 2006Q4

REPORT INFORMATION
  Report Type: 
  Country: None (occurrence: None)
  Receive Date: 20061226
  Receipt Date: 20060822
  Transmission Date: 20070319
  Serious: Yes (Death, Hospitalization)
  Sender: FDA-Public Use
  Company Number: US-NOVOPROD-256296

PATIENT
  Age: 51 Year
  Sex: Female

DRUGS (2)
  1. NOVOSEVEN [Suspect]
     Indication: PROPHYLAXIS
     Dosage: 1.2 MG, UNK
     Route: 042
  2. NOVOSEVEN [Suspect]
     Indication: HEPATIC CIRRHOSIS

REACTIONS (1)
  - MYOCARDIAL INFARCTION [None]
